FAERS Safety Report 6860433-0 (Version None)
Quarter: 2010Q3

REPORT INFORMATION
  Report Type: 
  Country: None (occurrence: None)
  Receive Date: 20100720
  Receipt Date: 20100706
  Transmission Date: 20110219
  Serious: Yes (Hospitalization, Other)
  Sender: FDA-Public Use
  Company Number: DE-ROCHE-713409

PATIENT
  Sex: Female
  Weight: 62.5 kg

DRUGS (8)
  1. TRASTUZUMAB [Suspect]
     Indication: BREAST CANCER
     Route: 042
     Dates: start: 20100310, end: 20100512
  2. TRASTUZUMAB [Suspect]
     Dosage: RECEIVED 2 CYCLES OF TRASTUZUMAB.
     Route: 042
     Dates: start: 20100602, end: 20100623
  3. DOXORUBICIN HCL [Suspect]
     Indication: BREAST CANCER
     Dosage: FORM: SOLUTION FOR INFUSION.
     Route: 042
     Dates: start: 20100310, end: 20100512
  4. DOCETAXEL [Suspect]
     Indication: BREAST CANCER
     Dosage: RECEIVED 2 CYCLES OF DOCETAXEL.
     Route: 042
     Dates: start: 20100602, end: 20100623
  5. CYCLOPHOSPHAMIDE [Suspect]
     Indication: BREAST CANCER
     Route: 042
     Dates: start: 20100310, end: 20100512
  6. METOCLOPRAMIDE [Concomitant]
     Indication: NAUSEA
     Dates: start: 20100406, end: 20100410
  7. LOPERAMIDE [Concomitant]
     Dates: start: 20100406
  8. LORAZEPAM [Concomitant]
     Indication: FEAR
     Dates: start: 20100420

REACTIONS (2)
  - ACUTE POLYNEUROPATHY [None]
  - NEUTROPENIA [None]
